FAERS Safety Report 4638106-4 (Version None)
Quarter: 2005Q2

REPORT INFORMATION
  Report Type: 
  Country: None (occurrence: None)
  Receive Date: 20050415
  Receipt Date: 20050411
  Transmission Date: 20051028
  Serious: Yes (Hospitalization)
  Sender: FDA-Public Use
  Company Number: 500553310/AKO4773AE

PATIENT
  Age: 83 Year
  Sex: Male
  Weight: 79.8331 kg

DRUGS (1)
  1. MYOCHRYSINE, 50MG, AKORN [Suspect]
     Dosage: 50 MG ONCE IM
     Route: 030
     Dates: start: 20050406

REACTIONS (3)
  - INFUSION RELATED REACTION [None]
  - POOR QUALITY DRUG ADMINISTERED [None]
  - SYNCOPE VASOVAGAL [None]
